FAERS Safety Report 10562662 (Version 1)
Quarter: 2014Q4

REPORT INFORMATION
  Report Type: Spontaneous
  Country: IN (occurrence: None)
  Receive Date: 20141103
  Receipt Date: 20141103
  Transmission Date: 20150529
  Serious: Yes (Hospitalization)
  Sender: FDA-Public Use
  Company Number: None

PATIENT
  Age: 02 Year
  Sex: Male
  Weight: 12 kg

DRUGS (1)
  1. ONDANSETRON [Suspect]
     Active Substance: ONDANSETRON
     Indication: VOMITING
     Route: 048

REACTIONS (6)
  - Leukocytosis [None]
  - Rash maculo-papular [None]
  - Pyrexia [None]
  - Rash generalised [None]
  - Eyelid oedema [None]
  - Pruritus [None]

NARRATIVE: CASE EVENT DATE: 20140923
